FAERS Safety Report 18624096 (Version 3)
Quarter: 2021Q1

REPORT INFORMATION
  Report Type: Spontaneous
  Country: US (occurrence: US)
  Receive Date: 20201216
  Receipt Date: 20210208
  Transmission Date: 20210419
  Serious: Yes (Death)
  Sender: FDA-Public Use
  Company Number: US-SAOL THERAPEUTICS-2020SAO00513

PATIENT
  Sex: Female
  Weight: 59.86 kg

DRUGS (13)
  1. LIORESAL [Suspect]
     Active Substance: BACLOFEN
     Indication: MUSCLE SPASTICITY
  2. ROBITUSSIN (GUAIFENESIN) [Concomitant]
     Active Substance: GUAIFENESIN
  3. ALMACONE [Concomitant]
     Active Substance: ALUMINUM HYDROXIDE\DIMETHICONE\MAGNESIUM HYDROXIDE
  4. FLEXERIL [Concomitant]
     Active Substance: CYCLOBENZAPRINE HYDROCHLORIDE
  5. CELEXA [Concomitant]
     Active Substance: CITALOPRAM HYDROBROMIDE
  6. TYLENOL [Concomitant]
     Active Substance: ACETAMINOPHEN
  7. BISACODYL. [Concomitant]
     Active Substance: BISACODYL
  8. LIORESAL [Suspect]
     Active Substance: BACLOFEN
     Indication: SPINAL PAIN
     Dosage: 1292.6 ?G, \DAY; INITIAL START DATE PRIOR OT 2001
     Route: 037
  9. BENZOCAINE. [Concomitant]
     Active Substance: BENZOCAINE
  10. DEBROX [Concomitant]
     Active Substance: CARBAMIDE PEROXIDE
  11. DOCUSATE SODIUM. [Concomitant]
     Active Substance: DOCUSATE SODIUM
  12. LOTRIMIN [Concomitant]
     Active Substance: CLOTRIMAZOLE
  13. VOLTAREN [Concomitant]
     Active Substance: DICLOFENAC SODIUM

REACTIONS (2)
  - Scoliosis [Unknown]
  - Lung disorder [Fatal]
